FAERS Safety Report 19948902 (Version 1)
Quarter: 2021Q4

REPORT INFORMATION
  Report Type: Spontaneous
  Country: US (occurrence: US)
  Receive Date: 20211012
  Receipt Date: 20211012
  Transmission Date: 20220303
  Serious: Yes (Death)
  Sender: FDA-Public Use
  Company Number: None

PATIENT
  Age: 68 Year
  Sex: Male
  Weight: 75 kg

DRUGS (1)
  1. BARICITINIB [Suspect]
     Active Substance: BARICITINIB
     Indication: COVID-19
     Route: 048
     Dates: start: 20210829, end: 20210901

REACTIONS (5)
  - Bradycardia [None]
  - Electrocardiogram ST segment elevation [None]
  - Coronary artery bypass [None]
  - Cardiogenic shock [None]
  - Cardiac arrest [None]

NARRATIVE: CASE EVENT DATE: 20210831
